FAERS Safety Report 19643490 (Version 1)
Quarter: 2021Q3

REPORT INFORMATION
  Report Type: Spontaneous
  Country: CA (occurrence: CA)
  Receive Date: 20210730
  Receipt Date: 20210730
  Transmission Date: 20211014
  Serious: Yes (Hospitalization)
  Sender: FDA-Public Use
  Company Number: CA-009507513-2107CAN008538

PATIENT
  Age: 23 Month
  Sex: Male
  Weight: 13 kg

DRUGS (4)
  1. CHOLECALCIFEROL [Concomitant]
     Active Substance: CHOLECALCIFEROL
     Dosage: DOSAGE FORM: NOT SPECIFIED
  2. ONDANSETRON [Concomitant]
     Active Substance: ONDANSETRON
     Dosage: DOSAGE FORM: NOT SPECIFIED
  3. INTERLEUKIN?2 [Suspect]
     Active Substance: ALDESLEUKIN
     Indication: ACUTE MYELOID LEUKAEMIA
     Dosage: 1.25 MICRO INTERNATIONAL UNIT, 1 EVERY 12 HOURS
     Route: 058
  4. INTRON A [Suspect]
     Active Substance: INTERFERON ALFA-2B
     Indication: ACUTE MYELOID LEUKAEMIA
     Dosage: 0.6 MICRO INTERNATIONAL UNIT, 1 EVERY 1 DAYS; FORMULATION: LIQUID SUBCUTANEOUS
     Route: 058

REACTIONS (7)
  - Decreased appetite [Recovered/Resolved]
  - General physical health deterioration [Recovered/Resolved]
  - Pyrexia [Recovered/Resolved]
  - Dehydration [Recovered/Resolved]
  - Asthenia [Recovered/Resolved]
  - Malaise [Recovered/Resolved]
  - Rash [Recovered/Resolved]
